FAERS Safety Report 5913479-0 (Version None)
Quarter: 2008Q4

REPORT INFORMATION
  Report Type: 
  Country: None (occurrence: None)
  Receive Date: 20081009
  Receipt Date: 20080930
  Transmission Date: 20090506
  Serious: Yes (Other)
  Sender: FDA-Public Use
  Company Number: CH-AMGEN-US311164

PATIENT
  Age: 60 Year
  Sex: Male

DRUGS (2)
  1. ENBREL [Suspect]
     Indication: PSORIASIS
     Dosage: DOSE AND FREQUENCY UNKNOWN
  2. ENBREL [Suspect]
     Dosage: 50 MG TWICE PER WEEK

REACTIONS (2)
  - DRUG EFFECT DECREASED [None]
  - PSORIATIC ARTHROPATHY [None]
